FAERS Safety Report 5520525-5 (Version None)
Quarter: 2007Q4

REPORT INFORMATION
  Report Type: 
  Country: None (occurrence: None)
  Receive Date: 20071115
  Receipt Date: 20071112
  Transmission Date: 20080405
  Serious: Yes (Other)
  Sender: FDA-Public Use
  Company Number: 2007334978

PATIENT
  Sex: Male

DRUGS (1)
  1. ROGAINE 5 [Suspect]
     Dosage: UNSPECIFIED, TOPICAL
     Route: 061

REACTIONS (1)
  - ERECTILE DYSFUNCTION [None]
